FAERS Safety Report 16619925 (Version 1)
Quarter: 2019Q3

REPORT INFORMATION
  Report Type: Spontaneous
  Country: DE (occurrence: DE)
  Receive Date: 20190723
  Receipt Date: 20190723
  Transmission Date: 20191004
  Serious: Yes (Hospitalization, Other)
  Sender: FDA-Public Use
  Company Number: DE-BAUSCH-BL-2019-020388

PATIENT
  Age: 37 Year
  Sex: Male
  Weight: 60 kg

DRUGS (6)
  1. LEMTRADA [Suspect]
     Active Substance: ALEMTUZUMAB
     Route: 041
     Dates: start: 201508, end: 201508
  2. L-THYROXINE (LEVOTHYROXINE) [Concomitant]
     Active Substance: LEVOTHYROXINE
     Indication: PRODUCT USED FOR UNKNOWN INDICATION
     Route: 048
     Dates: start: 201806
  3. PANTOPRAZOL (PANTOPRAZOLE) [Concomitant]
     Active Substance: PANTOPRAZOLE
     Indication: PROPHYLAXIS
     Dosage: 40 MG, BID
     Route: 048
     Dates: start: 201905
  4. PREDNISOLONE. [Suspect]
     Active Substance: PREDNISOLONE
     Indication: AUTOIMMUNE HAEMOLYTIC ANAEMIA
     Route: 048
     Dates: start: 201905
  5. LEMTRADA [Suspect]
     Active Substance: ALEMTUZUMAB
     Indication: MULTIPLE SCLEROSIS
     Dosage: 12 UNK
     Route: 041
     Dates: start: 20160808, end: 20160810
  6. BOTULINUM TOXIN [Concomitant]
     Active Substance: BOTULINUM TOXIN NOS
     Indication: HEMIPARESIS
     Dosage: 70 (UNITS UNKNOWN), Q12W
     Route: 048
     Dates: start: 201611

REACTIONS (37)
  - Tremor [Unknown]
  - Mean cell haemoglobin increased [Unknown]
  - Eosinophil count abnormal [Unknown]
  - Chronic gastritis [Unknown]
  - Disturbance in attention [Unknown]
  - Splenomegaly [Unknown]
  - Urinary tract disorder [Unknown]
  - Lhermitte^s sign [Unknown]
  - Fatigue [Unknown]
  - Lymphopenia [Unknown]
  - Goitre [Unknown]
  - Heart rate abnormal [Unknown]
  - Restlessness [Unknown]
  - Hemiparaesthesia [Unknown]
  - Haemoglobin decreased [Unknown]
  - Eosinophil percentage abnormal [Unknown]
  - Coombs direct test positive [Unknown]
  - Monocyte percentage abnormal [Unknown]
  - Vitiligo [Unknown]
  - Lymphocyte percentage abnormal [Unknown]
  - Blood bilirubin increased [Unknown]
  - Hemiparesis [Unknown]
  - Blood lactate dehydrogenase increased [Unknown]
  - Neutrophil percentage abnormal [Unknown]
  - Hyperchromic anaemia [Unknown]
  - Cholecystitis acute [Unknown]
  - Lymphadenopathy [Unknown]
  - Monocyte count abnormal [Unknown]
  - Red blood cell count decreased [Unknown]
  - Hepatic enzyme abnormal [Unknown]
  - Muscle spasticity [Unknown]
  - Autoimmune haemolytic anaemia [Recovering/Resolving]
  - Hyperthyroidism [Unknown]
  - Basedow^s disease [Unknown]
  - Lymphocyte count abnormal [Unknown]
  - Haematocrit decreased [Unknown]
  - Neutrophil count abnormal [Unknown]

NARRATIVE: CASE EVENT DATE: 201608
